APPROVED DRUG PRODUCT: SUDAFED 12 HOUR
Active Ingredient: PSEUDOEPHEDRINE HYDROCHLORIDE
Strength: 120MG
Dosage Form/Route: TABLET, EXTENDED RELEASE;ORAL
Application: A073585 | Product #001
Applicant: MCNEIL CONSUMER HEALTHCARE
Approved: Oct 31, 1991 | RLD: No | RS: No | Type: DISCN